FAERS Safety Report 15140371 (Version 3)
Quarter: 2018Q3

REPORT INFORMATION
  Report Type: Spontaneous
  Country: IT (occurrence: IT)
  Receive Date: 20180713
  Receipt Date: 20180829
  Transmission Date: 20181010
  Serious: Yes (Life-Threatening)
  Sender: FDA-Public Use
  Company Number: PHHY2017IT164781

PATIENT
  Age: 41 Year
  Sex: Male

DRUGS (6)
  1. GABAPENTIN SANDOZ [Suspect]
     Active Substance: GABAPENTIN
     Indication: STATUS EPILEPTICUS
     Dosage: 2400 MG, QD
     Route: 048
  2. SINTROM [Concomitant]
     Active Substance: ACENOCOUMAROL
     Indication: PRODUCT USED FOR UNKNOWN INDICATION
     Dosage: UNK
     Route: 065
  3. GABAPENTIN FIDIA [Suspect]
     Active Substance: GABAPENTIN
     Indication: STATUS EPILEPTICUS
     Dosage: 2400 MG, QD
     Route: 048
  4. GABAPENTIN TEVA [Suspect]
     Active Substance: GABAPENTIN
     Indication: STATUS EPILEPTICUS
     Dosage: 2400 MG, QD
     Route: 048
  5. GARDENALE [Concomitant]
     Active Substance: PHENOBARBITAL
     Indication: PRODUCT USED FOR UNKNOWN INDICATION
     Dosage: UNK
     Route: 065
  6. TOLEP [Concomitant]
     Active Substance: OXCARBAZEPINE
     Indication: PRODUCT USED FOR UNKNOWN INDICATION
     Dosage: UNK
     Route: 065

REACTIONS (3)
  - Somnolence [Recovered/Resolved]
  - Product substitution issue [Recovered/Resolved]
  - Sleep attacks [Recovered/Resolved]

NARRATIVE: CASE EVENT DATE: 20110101
